FAERS Safety Report 25679985 (Version 1)
Quarter: 2025Q3

REPORT INFORMATION
  Report Type: Spontaneous
  Country: EU (occurrence: EU)
  Receive Date: 20250814
  Receipt Date: 20250814
  Transmission Date: 20251021
  Serious: Yes (Hospitalization, Other)
  Sender: AMGEN
  Company Number: EU-AMGEN-GRCSP2025155997

PATIENT
  Age: 57 Year
  Sex: Female

DRUGS (15)
  1. XGEVA [Suspect]
     Active Substance: DENOSUMAB
     Indication: Breast cancer metastatic
     Route: 065
  2. XGEVA [Suspect]
     Active Substance: DENOSUMAB
     Indication: Metastases to bone
  3. XGEVA [Suspect]
     Active Substance: DENOSUMAB
     Indication: Metastases to liver
  4. XGEVA [Suspect]
     Active Substance: DENOSUMAB
     Indication: Metastases to lymph nodes
  5. XGEVA [Suspect]
     Active Substance: DENOSUMAB
     Indication: Metastases to lung
  6. LETROZOLE [Concomitant]
     Active Substance: LETROZOLE
     Indication: Breast cancer metastatic
     Route: 065
  7. LETROZOLE [Concomitant]
     Active Substance: LETROZOLE
     Indication: Metastases to bone
  8. LETROZOLE [Concomitant]
     Active Substance: LETROZOLE
     Indication: Metastases to liver
  9. LETROZOLE [Concomitant]
     Active Substance: LETROZOLE
     Indication: Metastases to lymph nodes
  10. LETROZOLE [Concomitant]
     Active Substance: LETROZOLE
     Indication: Metastases to lung
  11. PALBOCICLIB [Concomitant]
     Active Substance: PALBOCICLIB
     Indication: Breast cancer metastatic
     Route: 065
  12. PALBOCICLIB [Concomitant]
     Active Substance: PALBOCICLIB
     Indication: Metastases to bone
  13. PALBOCICLIB [Concomitant]
     Active Substance: PALBOCICLIB
     Indication: Metastases to liver
  14. PALBOCICLIB [Concomitant]
     Active Substance: PALBOCICLIB
     Indication: Metastases to lymph nodes
  15. PALBOCICLIB [Concomitant]
     Active Substance: PALBOCICLIB
     Indication: Metastases to lung

REACTIONS (6)
  - Spinal cord compression [Not Recovered/Not Resolved]
  - Bone marrow infiltration [Recovering/Resolving]
  - Metastases to liver [Unknown]
  - Vertebral column mass [Unknown]
  - Thrombocytopenia [Recovering/Resolving]
  - Anaemia [Recovering/Resolving]
